FAERS Safety Report 6103183-0 (Version None)
Quarter: 2009Q1

REPORT INFORMATION
  Report Type: 
  Country: None (occurrence: None)
  Receive Date: 20090302
  Receipt Date: 20090213
  Transmission Date: 20090719
  Serious: No
  Sender: FDA-Public Use
  Company Number: C-09-0027-W

PATIENT

DRUGS (1)
  1. MIDAZOLAM HCL [Suspect]

REACTIONS (1)
  - VOMITING [None]
